FAERS Safety Report 19253880 (Version 1)
Quarter: 2021Q2

REPORT INFORMATION
  Report Type: Spontaneous
  Country: US (occurrence: US)
  Receive Date: 20210513
  Receipt Date: 20210513
  Transmission Date: 20210717
  Serious: No
  Sender: FDA-Public Use
  Company Number: None

PATIENT
  Age: 2 Year
  Sex: Male
  Weight: 12.6 kg

DRUGS (4)
  1. CETAPHIL BABY BODY WASH [Concomitant]
  2. THE HONEST COMPANY ECZEMA SOOTHING THERAPY BODY WASH [Suspect]
     Active Substance: COSMETICS
     Indication: ECZEMA
     Route: 061
     Dates: start: 20210330, end: 20210402
  3. CORTISOL CREAM [Concomitant]
  4. HONEST ECZEMA CREAM [Suspect]
     Active Substance: OATMEAL
     Indication: ECZEMA
     Route: 061
     Dates: start: 20210330, end: 20210402

REACTIONS (3)
  - Eczema [None]
  - Product label issue [None]
  - Condition aggravated [None]

NARRATIVE: CASE EVENT DATE: 20210330
